FAERS Safety Report 6060001-7 (Version None)
Quarter: 2009Q1

REPORT INFORMATION
  Report Type: 
  Country: None (occurrence: None)
  Receive Date: 20090130
  Receipt Date: 20090122
  Transmission Date: 20090719
  Serious: Yes (Other)
  Sender: FDA-Public Use
  Company Number: US-GENENTECH-276005

PATIENT
  Age: 65 Year
  Sex: Male

DRUGS (8)
  1. RITUXAN [Suspect]
     Indication: RHEUMATOID ARTHRITIS
     Dosage: 1000 MG, X2
     Route: 042
     Dates: start: 20081220
  2. MINOXIDIL [Concomitant]
     Indication: GOUT
  3. MINOXIDIL [Concomitant]
     Indication: ROSACEA
  4. ALLOPURINOL [Concomitant]
     Indication: GOUT
  5. ALLOPURINOL [Concomitant]
     Indication: ROSACEA
  6. LISINOPRIL [Concomitant]
     Indication: DRUG USE FOR UNKNOWN INDICATION
  7. MINOCYCLINE HCL [Concomitant]
     Indication: DRUG USE FOR UNKNOWN INDICATION
  8. FUROSEMIDE [Concomitant]
     Indication: DRUG USE FOR UNKNOWN INDICATION

REACTIONS (1)
  - SYSTEMIC LUPUS ERYTHEMATOSUS [None]
